FAERS Safety Report 19513069 (Version 1)
Quarter: 2021Q3

REPORT INFORMATION
  Report Type: Spontaneous
  Country: IT (occurrence: IT)
  Receive Date: 20210709
  Receipt Date: 20210709
  Transmission Date: 20211014
  Serious: Yes (Other)
  Sender: FDA-Public Use
  Company Number: IT-MYLANLABS-2021M1039904

PATIENT
  Age: 2 Month
  Sex: Male
  Weight: 2 kg

DRUGS (2)
  1. FENTANYL. [Concomitant]
     Active Substance: FENTANYL
     Indication: SEDATION
     Dosage: 2 MICROGRAM/KILOGRAM, QD
     Route: 042
     Dates: start: 20210104, end: 20210304
  2. DEXMEDETOMIDINE MYLAN [Suspect]
     Active Substance: DEXMEDETOMIDINE
     Indication: SEDATION COMPLICATION
     Dosage: 0.7 MICROGRAM/KILOGRAM, QD
     Route: 042
     Dates: start: 20210211, end: 20210328

REACTIONS (4)
  - Hypoalbuminaemia [Recovering/Resolving]
  - Off label use [Unknown]
  - Oedema [Recovering/Resolving]
  - Ascites [Recovering/Resolving]

NARRATIVE: CASE EVENT DATE: 20210227
